FAERS Safety Report 15097675 (Version 1)
Quarter: 2018Q3

REPORT INFORMATION
  Report Type: Spontaneous
  Country: US (occurrence: US)
  Receive Date: 20180702
  Receipt Date: 20180702
  Transmission Date: 20181010
  Serious: No
  Sender: FDA-Public Use
  Company Number: US-BAYER-2018-124256

PATIENT
  Age: 81 Year
  Sex: Female
  Weight: 53 kg

DRUGS (1)
  1. MIRALAX [Suspect]
     Active Substance: POLYETHYLENE GLYCOL 3350
     Dosage: HALF OF A PACKET, QD
     Route: 048
     Dates: start: 20180627, end: 20180627

REACTIONS (2)
  - Nausea [Unknown]
  - Prescribed underdose [None]

NARRATIVE: CASE EVENT DATE: 201806
